FAERS Safety Report 6020380-3 (Version None)
Quarter: 2008Q4

REPORT INFORMATION
  Report Type: 
  Country: None (occurrence: None)
  Receive Date: 20081226
  Receipt Date: 20081219
  Transmission Date: 20090506
  Serious: Yes (Hospitalization)
  Sender: FDA-Public Use
  Company Number: IT-MERCK-0811ITA00037

PATIENT
  Age: 82 Year
  Sex: Female

DRUGS (11)
  1. FOSAMAX [Suspect]
     Indication: OSTEOPOROSIS
     Route: 048
     Dates: start: 20041101, end: 20081001
  2. METHOTREXATE [Concomitant]
     Route: 065
     Dates: start: 20040101
  3. FOLIC ACID [Concomitant]
     Route: 065
  4. HYDROXYCHLOROQUINE SULFATE [Concomitant]
     Route: 065
  5. OMEPRAZOLE SODIUM [Concomitant]
     Route: 065
  6. DEFLAZACORT [Concomitant]
     Route: 065
  7. CALCIUM (UNSPECIFIED) AND VITAMIN D (UNSPECIFIED) [Concomitant]
     Route: 065
  8. AMLODIPINE BESYLATE [Concomitant]
     Route: 065
  9. BISOPROLOL FUMARATE [Concomitant]
     Route: 065
  10. HYDROCHLOROTHIAZIDE AND IRBESARTAN [Concomitant]
     Route: 065
  11. TRAMADOL HYDROCHLORIDE [Concomitant]
     Route: 065

REACTIONS (1)
  - OSTEOLYSIS [None]
